FAERS Safety Report 8179352-5 (Version None)
Quarter: 2012Q1

REPORT INFORMATION
  Report Type: 
  Country: None (occurrence: None)
  Receive Date: 20120302
  Receipt Date: 20120222
  Transmission Date: 20120608
  Serious: Yes (Other)
  Sender: FDA-Public Use
  Company Number: TW-JNJFOC-20120210862

PATIENT
  Sex: Female

DRUGS (2)
  1. RISPERDAL [Suspect]
     Indication: PRODUCT USED FOR UNKNOWN INDICATION
     Dosage: (2MG/TAB) 0.5 TABLET PER ORAL TWICE A DAY
     Route: 048
  2. FLUOXETINE [Concomitant]
     Route: 048

REACTIONS (4)
  - SOMNOLENCE [None]
  - WEIGHT INCREASED [None]
  - INTERMITTENT CLAUDICATION [None]
  - TREMOR [None]
